FAERS Safety Report 20764897 (Version 2)
Quarter: 2022Q2

REPORT INFORMATION
  Report Type: Spontaneous
  Country: IN (occurrence: IN)
  Receive Date: 20220428
  Receipt Date: 20220509
  Transmission Date: 20220721
  Serious: Yes (Hospitalization, Other)
  Sender: FDA-Public Use
  Company Number: IN-NOVARTISPH-NVSC2022IN079674

PATIENT
  Age: 35 Year
  Sex: Female

DRUGS (23)
  1. SIMULECT [Suspect]
     Active Substance: BASILIXIMAB
     Indication: Renal transplant
     Dosage: 20 MG
     Route: 042
     Dates: start: 20220320
  2. SIMULECT [Suspect]
     Active Substance: BASILIXIMAB
     Dosage: 20 MG
     Route: 042
     Dates: start: 20220324, end: 20220325
  3. TACROLIMUS [Suspect]
     Active Substance: TACROLIMUS
     Indication: Product used for unknown indication
     Dosage: UNK
     Route: 065
  4. TACROLIMUS [Suspect]
     Active Substance: TACROLIMUS
     Dosage: UNK, Q4H
     Route: 065
  5. TACROLIMUS [Suspect]
     Active Substance: TACROLIMUS
     Dosage: UNK, (DOSE INCREASE BY 1 MG)
     Route: 065
  6. TACROLIMUS [Suspect]
     Active Substance: TACROLIMUS
     Dosage: 6 MG, QD
     Route: 065
  7. PREDNISOLONE [Concomitant]
     Active Substance: PREDNISOLONE
     Indication: Product used for unknown indication
     Dosage: 1 DOSAGE FORM, QD, (8AM)
     Route: 065
  8. TACROLIMUS [Concomitant]
     Active Substance: TACROLIMUS
     Indication: Product used for unknown indication
     Dosage: 1 DOSAGE FORM, QD, (3.0 MG), (7AM)
     Route: 065
  9. TACROLIMUS [Concomitant]
     Active Substance: TACROLIMUS
     Dosage: 1 DOSAGE FORM, QD, (3.5 MG), (7PM)
     Route: 065
  10. MYFORTIC [Concomitant]
     Active Substance: MYCOPHENOLATE SODIUM
     Indication: Product used for unknown indication
     Dosage: 2 DOSAGE FORM, BID, (AT 8AM AND 8PM)
     Route: 065
  11. PANTOCID [Concomitant]
     Indication: Product used for unknown indication
     Dosage: 1 DOSAGE FORM, QD, (AT 7AM)
     Route: 065
  12. NIFEDIPINE [Concomitant]
     Active Substance: NIFEDIPINE
     Indication: Product used for unknown indication
     Dosage: 1 DOSAGE FORM, QD, (AT 9AM)
     Route: 065
  13. VALGANCICLOVIR [Concomitant]
     Active Substance: VALGANCICLOVIR
     Indication: Product used for unknown indication
     Dosage: 1 DOSAGE FORM, QD, (AT 10AM)
     Route: 065
  14. BACTRIM DS [Concomitant]
     Active Substance: SULFAMETHOXAZOLE\TRIMETHOPRIM
     Indication: Product used for unknown indication
     Dosage: 0.5 DOSAGE FORM, QD, (AT 9AM)
     Route: 065
  15. UNSPECIFIED INGREDIENT [Concomitant]
     Active Substance: UNSPECIFIED INGREDIENT
     Indication: Product used for unknown indication
     Dosage: 1 DOSAGE FORM, QD, (AT 10PM)
     Route: 065
  16. CALCI [Concomitant]
     Indication: Product used for unknown indication
     Dosage: 1 DOSAGE FORM, ALTERNATE DAY (AT 2PM)
     Route: 065
  17. CANDID B [Concomitant]
     Indication: Product used for unknown indication
     Dosage: 2 DRP, TID, (MOUNT PAINT), (AT 7AM, 2PM AND 10PM) FOR 1 WEEK
     Route: 065
  18. REPAGLINIDE [Concomitant]
     Active Substance: REPAGLINIDE
     Indication: Product used for unknown indication
     Dosage: 1 DOSAGE FORM, (0.5 MG), (AFTER BREAKFAST)
     Route: 065
  19. REPAGLINIDE [Concomitant]
     Active Substance: REPAGLINIDE
     Dosage: 1 DOSAGE FORM, (1 MG), (AFTER LUNCH)
     Route: 065
  20. REPAGLINIDE [Concomitant]
     Active Substance: REPAGLINIDE
     Dosage: 1 DOSAGE FORM, (0.5 MG), (AFTER DINNER)
     Route: 065
  21. MYCOPHENOLATE MOFETIL [Concomitant]
     Active Substance: MYCOPHENOLATE MOFETIL
     Indication: Product used for unknown indication
     Dosage: 4 DOSAGE FORM, QD
     Route: 065
  22. NIFEDIPINE [Concomitant]
     Active Substance: NIFEDIPINE
     Indication: Hypertension
     Dosage: UNK
     Route: 065
  23. METOPROLOL [Concomitant]
     Active Substance: METOPROLOL
     Indication: Hypertension
     Dosage: UNK
     Route: 065

REACTIONS (14)
  - Kidney transplant rejection [Unknown]
  - Urine output decreased [Unknown]
  - Weight increased [Unknown]
  - Proteinuria [Unknown]
  - Blood creatinine increased [Unknown]
  - Complications of transplanted kidney [Recovering/Resolving]
  - New onset diabetes after transplantation [Unknown]
  - Polyuria [Not Recovered/Not Resolved]
  - Chills [Unknown]
  - Abdominal pain [Unknown]
  - Platelet count decreased [Unknown]
  - Pyrexia [Unknown]
  - Haemoglobin decreased [Unknown]
  - Nausea [Unknown]

NARRATIVE: CASE EVENT DATE: 20220329
